FAERS Safety Report 5725819-6 (Version None)
Quarter: 2008Q2

REPORT INFORMATION
  Report Type: 
  Country: None (occurrence: None)
  Receive Date: 20080501
  Receipt Date: 20080423
  Transmission Date: 20081010
  Serious: Yes (Hospitalization)
  Sender: FDA-Public Use
  Company Number: US-GENENTECH-259928

PATIENT
  Sex: Female
  Weight: 66.667 kg

DRUGS (3)
  1. BEVACIZUMAB [Suspect]
     Indication: NEOPLASM MALIGNANT
     Dosage: 15 MG/KG, UNK
     Dates: start: 20080311
  2. ERLOTINIB [Suspect]
     Indication: NEOPLASM MALIGNANT
     Dosage: 150 MG, QD
     Dates: start: 20080311
  3. PACLITAXEL [Concomitant]
     Indication: NEOPLASM MALIGNANT
     Dosage: 50 MG/M2, UNK
     Dates: start: 20080311

REACTIONS (1)
  - PYREXIA [None]
